FAERS Safety Report 22787347 (Version 3)
Quarter: 2023Q4

REPORT INFORMATION
  Report Type: Report from Study
  Country: CO (occurrence: CO)
  Receive Date: 20230804
  Receipt Date: 20231215
  Transmission Date: 20240110
  Serious: Yes (Other)
  Sender: FDA-Public Use
  Company Number: CO-TAKEDA-2022TUS010529

PATIENT
  Age: 54 Year
  Sex: Female
  Weight: 52 kg

DRUGS (11)
  1. ICATIBANT [Suspect]
     Active Substance: ICATIBANT ACETATE
     Indication: Hereditary angioedema
     Dosage: 1 DOSAGE FORM
     Route: 058
     Dates: start: 20210914
  2. ICATIBANT [Suspect]
     Active Substance: ICATIBANT ACETATE
     Indication: Hereditary angioedema
     Dosage: 1 DOSAGE FORM
     Route: 058
     Dates: start: 20210914
  3. ICATIBANT [Suspect]
     Active Substance: ICATIBANT ACETATE
     Dosage: UNK UNK, Q6HR
     Route: 058
  4. ICATIBANT [Suspect]
     Active Substance: ICATIBANT ACETATE
     Dosage: UNK UNK, Q6HR
     Route: 058
  5. ICATIBANT [Suspect]
     Active Substance: ICATIBANT ACETATE
     Dosage: UNK
     Route: 058
  6. ICATIBANT [Suspect]
     Active Substance: ICATIBANT ACETATE
     Dosage: UNK
     Route: 058
  7. LOSARTAN [Concomitant]
     Active Substance: LOSARTAN
     Indication: Product used for unknown indication
     Dosage: 50 MILLIGRAM, Q12H
     Route: 065
  8. LOSARTAN [Concomitant]
     Active Substance: LOSARTAN
     Dosage: 40 MILLIGRAM, Q12H
     Route: 065
  9. LORATADINE [Concomitant]
     Active Substance: LORATADINE
     Indication: Product used for unknown indication
     Dosage: UNK
     Route: 065
  10. LOVASTATIN [Concomitant]
     Active Substance: LOVASTATIN
     Indication: Product used for unknown indication
     Dosage: UNK
     Route: 065
  11. TRANEXAMIC ACID [Concomitant]
     Active Substance: TRANEXAMIC ACID
     Dosage: UNK
     Route: 065

REACTIONS (21)
  - Hypoacusis [Recovered/Resolved]
  - Frustration tolerance decreased [Unknown]
  - Insomnia [Unknown]
  - Negative thoughts [Unknown]
  - Influenza [Recovered/Resolved]
  - Ear discomfort [Recovered/Resolved]
  - Excessive cerumen production [Recovered/Resolved]
  - Panic attack [Recovered/Resolved]
  - Insurance issue [Unknown]
  - Pruritus [Recovered/Resolved]
  - Depression [Recovering/Resolving]
  - Depressed mood [Recovering/Resolving]
  - Head discomfort [Not Recovered/Not Resolved]
  - Weight decreased [Not Recovered/Not Resolved]
  - Somnolence [Unknown]
  - Weight increased [Unknown]
  - Family stress [Recovered/Resolved]
  - Crying [Unknown]
  - Anxiety [Not Recovered/Not Resolved]
  - Mood altered [Unknown]
  - Anger [Unknown]

NARRATIVE: CASE EVENT DATE: 20220407
